FAERS Safety Report 23082738 (Version 1)
Quarter: 2023Q4

REPORT INFORMATION
  Report Type: Spontaneous
  Country: US (occurrence: US)
  Receive Date: 20231019
  Receipt Date: 20231019
  Transmission Date: 20240110
  Serious: No
  Sender: FDA-Public Use
  Company Number: US-BRISTOL-MYERS SQUIBB COMPANY-2023-149297

PATIENT
  Age: 68 Year
  Sex: Female

DRUGS (1)
  1. REVLIMID [Suspect]
     Active Substance: LENALIDOMIDE
     Indication: Product used for unknown indication
     Dosage: DOSE : 15 MG;     FREQ : DAILY FOR 21 DAYS
     Route: 048
     Dates: start: 20230925

REACTIONS (1)
  - Wrong dose [Unknown]

NARRATIVE: CASE EVENT DATE: 20230925
